FAERS Safety Report 7341261-9 (Version None)
Quarter: 2011Q1

REPORT INFORMATION
  Report Type: 
  Country: None (occurrence: None)
  Receive Date: 20110309
  Receipt Date: 20110225
  Transmission Date: 20110831
  Serious: Yes (Hospitalization, Other)
  Sender: FDA-Public Use
  Company Number: PHHY2010US59963

PATIENT
  Sex: Male
  Weight: 54.54 kg

DRUGS (1)
  1. EXJADE [Suspect]
     Indication: THALASSAEMIA
     Dosage: 2 DF DAILY
     Route: 048
     Dates: start: 20100714, end: 20110201

REACTIONS (10)
  - ASTHENIA [None]
  - ABDOMINAL PAIN UPPER [None]
  - DIARRHOEA [None]
  - VISUAL IMPAIRMENT [None]
  - PULMONARY HYPERTENSION [None]
  - VERTIGO [None]
  - TINNITUS [None]
  - DIZZINESS [None]
  - FATIGUE [None]
  - HEART RATE INCREASED [None]
